FAERS Safety Report 12197748 (Version 1)
Quarter: 2016Q1

REPORT INFORMATION
  Report Type: Spontaneous
  Country: US (occurrence: None)
  Receive Date: 20160321
  Receipt Date: 20160321
  Transmission Date: 20160526
  Serious: Yes (Disabling)
  Sender: FDA-Public Use
  Company Number: None

PATIENT
  Age: 69 Year
  Sex: Female
  Weight: 68.04 kg

DRUGS (8)
  1. CIMZIA [Concomitant]
     Active Substance: CERTOLIZUMAB PEGOL
  2. POTASSIUM [Concomitant]
     Active Substance: POTASSIUM
  3. FOLIC ACID. [Concomitant]
     Active Substance: FOLIC ACID
  4. METHOTREXATE [Suspect]
     Active Substance: METHOTREXATE
     Indication: RHEUMATOID ARTHRITIS
     Dosage: 5 MG 5-6 PILLS A WEEK ONCE PER WEEK TAKEN BY MOUTH
     Route: 048
  5. TRAMADO [Concomitant]
  6. VITAMIN D3 [Concomitant]
     Active Substance: CHOLECALCIFEROL
  7. MULTI VITAMIN [Concomitant]
     Active Substance: VITAMINS
  8. GABAPENTINE [Concomitant]
     Active Substance: GABAPENTIN

REACTIONS (2)
  - Lung disorder [None]
  - Pneumonia [None]

NARRATIVE: CASE EVENT DATE: 20140718
